FAERS Safety Report 10595257 (Version 1)
Quarter: 2014Q4

REPORT INFORMATION
  Report Type: Spontaneous
  Country: US (occurrence: None)
  Receive Date: 20141119
  Receipt Date: 20141119
  Transmission Date: 20150529
  Serious: Yes (Disabling)
  Sender: FDA-Public Use
  Company Number: None

PATIENT
  Age: 15 Year
  Sex: Female

DRUGS (7)
  1. SULFAMETHOXAZOLE-TRIMETHOPRIM (SMZ) [Concomitant]
     Active Substance: SULFAMETHOXAZOLE\TRIMETHOPRIM
  2. SOD SULFACETAMIDE WASH [Concomitant]
  3. DOXYCYCLINE MONOHYDRATE [Concomitant]
     Active Substance: DOXYCYCLINE
  4. SOLODYN [Suspect]
     Active Substance: MINOCYCLINE HYDROCHLORIDE
     Indication: ACNE
     Route: 048
     Dates: start: 20130120, end: 20140731
  5. ACZONE GEL [Concomitant]
  6. TAZORAC CREAM [Concomitant]
  7. EPIDUO [Concomitant]
     Active Substance: ADAPALENE\BENZOYL PEROXIDE

REACTIONS (1)
  - Systemic lupus erythematosus [None]

NARRATIVE: CASE EVENT DATE: 20140731
